FAERS Safety Report 7486055-9 (Version None)
Quarter: 2011Q2

REPORT INFORMATION
  Report Type: 
  Country: None (occurrence: None)
  Receive Date: 20110517
  Receipt Date: 20110401
  Transmission Date: 20111010
  Serious: No
  Sender: FDA-Public Use
  Company Number: US-NOVEN-11US002173

PATIENT
  Sex: Female

DRUGS (4)
  1. DAYTRANA [Suspect]
     Indication: ATTENTION DEFICIT/HYPERACTIVITY DISORDER
     Dosage: 20 MG, QD
     Route: 062
     Dates: start: 20060101
  2. ZOLOFT [Concomitant]
     Indication: ANXIETY
     Dosage: 12.5 MG, QD
     Route: 048
  3. ZOLOFT [Concomitant]
     Indication: ABNORMAL BEHAVIOUR
  4. FOCALIN [Concomitant]
     Indication: ATTENTION DEFICIT/HYPERACTIVITY DISORDER
     Dosage: UNK, AFTER SCHOOL
     Route: 048

REACTIONS (5)
  - DISTURBANCE IN SOCIAL BEHAVIOUR [None]
  - PRODUCT QUALITY ISSUE [None]
  - INCORRECT DOSE ADMINISTERED [None]
  - DRUG ADMINISTRATION ERROR [None]
  - AGGRESSION [None]
